APPROVED DRUG PRODUCT: POTASSIUM ACETATE
Active Ingredient: POTASSIUM ACETATE
Strength: 2MEQ/ML
Dosage Form/Route: INJECTABLE;INJECTION
Application: N018896 | Product #001 | TE Code: AP
Applicant: HOSPIRA INC
Approved: Jul 20, 1984 | RLD: Yes | RS: Yes | Type: RX